FAERS Safety Report 7911922-9 (Version None)
Quarter: 2011Q4

REPORT INFORMATION
  Report Type: 
  Country: None (occurrence: None)
  Receive Date: 20111114
  Receipt Date: 20111104
  Transmission Date: 20120403
  Serious: Yes (Other)
  Sender: FDA-Public Use
  Company Number: JP-MPIJNJ-2011-04623

PATIENT

DRUGS (4)
  1. VELCADE [Suspect]
     Indication: MULTIPLE MYELOMA
     Dosage: 1.7 MG, UNK
     Route: 042
     Dates: start: 20110905
  2. DEXAMETHASONE SODIUM PHOSPHATE [Concomitant]
     Indication: MULTIPLE MYELOMA
     Dosage: 20 MG, UNK
     Route: 042
     Dates: start: 20110901, end: 20110905
  3. DEXAMETHASONE [Concomitant]
     Indication: MULTIPLE MYELOMA
     Dosage: 20 MG, UNK
     Route: 048
     Dates: start: 20110906
  4. GARENOXACIN MESYLATE [Suspect]
     Indication: ATYPICAL MYCOBACTERIAL INFECTION
     Dosage: 200 MG, UNK
     Route: 048
     Dates: start: 20110917

REACTIONS (1)
  - SINUS ARREST [None]
